FAERS Safety Report 17428581 (Version 3)
Quarter: 2020Q2

REPORT INFORMATION
  Report Type: Report from Study
  Country: None (occurrence: US)
  Receive Date: 20200218
  Receipt Date: 20200518
  Transmission Date: 20200713
  Serious: Yes (Other)
  Sender: FDA-Public Use
  Company Number: US-INSMED, INC.-US-INS-20-00243

PATIENT
  Age: 79 Year
  Sex: Female

DRUGS (2)
  1. ARIKAYCE [Suspect]
     Active Substance: AMIKACIN
     Indication: MYCOBACTERIAL INFECTION
     Route: 055
     Dates: start: 20191218, end: 202005
  2. LAMIRA NEBULIZER SYSTEM [Suspect]
     Active Substance: DEVICE

REACTIONS (14)
  - Asthenia [Unknown]
  - Productive cough [Unknown]
  - Dyspnoea [Unknown]
  - Total lung capacity decreased [Unknown]
  - Agitation [Unknown]
  - Nasopharyngitis [Unknown]
  - Blood pressure increased [Unknown]
  - Secretion discharge [Unknown]
  - Dysphonia [Unknown]
  - Cough [Unknown]
  - Pulmonary congestion [Unknown]
  - Hot flush [Not Recovered/Not Resolved]
  - Hypoacusis [Unknown]
  - Sputum discoloured [Unknown]

NARRATIVE: CASE EVENT DATE: 202001
